FAERS Safety Report 20233852 (Version 5)
Quarter: 2022Q2

REPORT INFORMATION
  Report Type: Report from Study
  Country: FR (occurrence: FR)
  Receive Date: 20211227
  Receipt Date: 20220411
  Transmission Date: 20220721
  Serious: Yes (Other)
  Sender: FDA-Public Use
  Company Number: FR-RIGEL PHARMACEUTICALS, INC.-2021FOS000851

PATIENT
  Sex: Female
  Weight: 63 kg

DRUGS (2)
  1. FOSTAMATINIB DISODIUM [Suspect]
     Active Substance: FOSTAMATINIB DISODIUM
     Indication: Autoimmune haemolytic anaemia
     Dosage: 150 MG, BID
     Route: 048
     Dates: start: 20200727, end: 20211216
  2. DESOGESTREL [Concomitant]
     Active Substance: DESOGESTREL
     Indication: Supplementation therapy
     Dosage: 75 MICROGRAM, QD
     Route: 048
     Dates: start: 20191128

REACTIONS (1)
  - Neutropenia [Recovered/Resolved]

NARRATIVE: CASE EVENT DATE: 20211217
